FAERS Safety Report 9809001 (Version 2)
Quarter: 2014Q1

REPORT INFORMATION
  Report Type: Spontaneous
  Country: US (occurrence: US)
  Receive Date: 20140110
  Receipt Date: 20140113
  Transmission Date: 20141002
  Serious: Yes (Hospitalization)
  Sender: FDA-Public Use
  Company Number: US-GLAXOSMITHKLINE-A1056000A

PATIENT
  Age: 68 Year
  Sex: Female

DRUGS (4)
  1. PROMACTA [Suspect]
     Indication: THROMBOTIC THROMBOCYTOPENIC PURPURA
     Dosage: 50MG PER DAY
     Route: 048
     Dates: start: 20131210, end: 20140107
  2. CELEXA [Concomitant]
  3. XANAX [Concomitant]
  4. NEULASTA [Concomitant]

REACTIONS (5)
  - Back pain [Recovering/Resolving]
  - Pyrexia [Unknown]
  - Blood test abnormal [Unknown]
  - Influenza like illness [Unknown]
  - Investigation [Unknown]
